FAERS Safety Report 10467080 (Version 1)
Quarter: 2014Q3

REPORT INFORMATION
  Report Type: Spontaneous
  Country: EC (occurrence: EC)
  Receive Date: 20140922
  Receipt Date: 20140922
  Transmission Date: 20150326
  Serious: Yes (Death, Life-Threatening, Hospitalization, Disabling)
  Sender: FDA-Public Use
  Company Number: EC-B.I. PHARMACEUTICALS,INC./RIDGEFIELD-2014-BI-44841EB

PATIENT
  Age: 87 Year
  Sex: Female

DRUGS (7)
  1. ANALGAN [Concomitant]
     Indication: PAIN
     Dosage: 1500 MG
     Route: 048
     Dates: start: 20140805, end: 20140830
  2. SPIRONOLACTONE. [Concomitant]
     Active Substance: SPIRONOLACTONE
     Indication: HYPERTENSION
     Dosage: 1.1905 MG
     Route: 048
     Dates: start: 2004, end: 201408
  3. VALSARTAN. [Concomitant]
     Active Substance: VALSARTAN
     Indication: HYPERTENSION
     Dosage: 160 MG
     Route: 048
     Dates: start: 2004, end: 201408
  4. CAVERDILOL [Concomitant]
     Indication: ATRIAL FIBRILLATION
     Dosage: 12.5 MG
     Route: 048
     Dates: start: 2004, end: 201408
  5. PRADAXA [Suspect]
     Active Substance: DABIGATRAN ETEXILATE MESYLATE
     Indication: ATRIAL FIBRILLATION
     Dosage: 300 MG
     Route: 048
     Dates: start: 20140805, end: 201409
  6. SITAGLIPINA AND METFORMIN [Concomitant]
     Indication: DIABETES MELLITUS
     Dosage: 128.5 MG
     Route: 048
     Dates: start: 2004, end: 201408
  7. ATORVASTATIN CALCIUM. [Concomitant]
     Active Substance: ATORVASTATIN CALCIUM
     Indication: HYPERCHOLESTEROLAEMIA
     Dosage: 10 MG
     Route: 048
     Dates: start: 2004, end: 201408

REACTIONS (3)
  - Upper gastrointestinal haemorrhage [Fatal]
  - Haemorrhage intracranial [Fatal]
  - Rectal haemorrhage [Fatal]

NARRATIVE: CASE EVENT DATE: 20140830
